FAERS Safety Report 22287360 (Version 2)
Quarter: 2023Q2

REPORT INFORMATION
  Report Type: Spontaneous
  Country: PL (occurrence: PL)
  Receive Date: 20230505
  Receipt Date: 20230607
  Transmission Date: 20230722
  Serious: Yes (Other)
  Sender: FDA-Public Use
  Company Number: PL-EMA-DD-20230309-7222542-132637

PATIENT
  Age: 41 Year
  Sex: Male

DRUGS (10)
  1. ATORVASTATIN [Interacting]
     Active Substance: ATORVASTATIN
     Indication: Product used for unknown indication
     Dosage: 40 MILLIGRAM, DAILY
     Route: 065
  2. IBUPROFEN [Interacting]
     Active Substance: IBUPROFEN
     Indication: Visceral pain
     Dosage: 1800 MILLIGRAM, DAILY
     Route: 065
  3. IBUPROFEN [Interacting]
     Active Substance: IBUPROFEN
     Indication: Pancreatitis chronic
  4. OMEPRAZOLE [Interacting]
     Active Substance: OMEPRAZOLE
     Indication: Pancreatitis chronic
     Dosage: 40 MILLIGRAM, DAILY
     Route: 048
  5. OMEPRAZOLE [Interacting]
     Active Substance: OMEPRAZOLE
     Indication: Visceral pain
  6. OMEPRAZOLE [Suspect]
     Active Substance: OMEPRAZOLE
     Indication: Abdominal pain upper
     Dosage: 40 MILLIGRAM, DAILY
     Route: 048
  7. QUETIAPINE [Interacting]
     Active Substance: QUETIAPINE
     Indication: Anxiety
     Dosage: 100 MILLIGRAM, DAILY
     Route: 065
  8. QUETIAPINE [Interacting]
     Active Substance: QUETIAPINE
     Indication: Sleep disorder
  9. TRAMADOL [Interacting]
     Active Substance: TRAMADOL
     Indication: Visceral pain
     Dosage: 200 MILLIGRAM, DAILY
     Route: 065
  10. TRAMADOL [Interacting]
     Active Substance: TRAMADOL
     Indication: Pancreatitis chronic
     Dosage: 300 MILLIGRAM, DAILY
     Route: 065

REACTIONS (6)
  - Seizure [Recovered/Resolved]
  - Drug ineffective [Recovered/Resolved]
  - Drug interaction [Unknown]
  - Pain [Recovered/Resolved]
  - Anxiety [Recovered/Resolved]
  - Insomnia [Recovering/Resolving]
